FAERS Safety Report 7820594-3 (Version None)
Quarter: 2011Q4

REPORT INFORMATION
  Report Type: 
  Country: None (occurrence: None)
  Receive Date: 20111018
  Receipt Date: 20111011
  Transmission Date: 20120403
  Serious: Yes (Other)
  Sender: FDA-Public Use
  Company Number: GB-TEVA-304571ISR

PATIENT
  Age: 39 Year
  Sex: Female

DRUGS (6)
  1. BECLOMETHASONE DIPROPIONATE [Concomitant]
  2. CITALOPRAM [Concomitant]
     Indication: DEPRESSION
  3. VENTOLIN [Concomitant]
  4. AMITRIPTYLINE HCL [Suspect]
     Indication: HEADACHE
     Dosage: TAKEN AT NIGHT
     Route: 065
  5. LORATADINE [Suspect]
     Indication: RHINITIS
     Route: 065
     Dates: start: 20050101
  6. GLANDOSANE [Concomitant]

REACTIONS (2)
  - ABORTION SPONTANEOUS [None]
  - PREGNANCY [None]
